FAERS Safety Report 7108692-3 (Version None)
Quarter: 2010Q4

REPORT INFORMATION
  Report Type: 
  Country: None (occurrence: None)
  Receive Date: 20101115
  Receipt Date: 20101115
  Transmission Date: 20110411
  Serious: Yes (Life-Threatening, Disabling, Other)
  Sender: FDA-Public Use
  Company Number: None

PATIENT
  Sex: Female
  Weight: 58.9676 kg

DRUGS (4)
  1. BUPROPION HCL [Suspect]
     Indication: DEPRESSION
     Dosage: 1X DAY PO STILL ON 150 MG DAY
     Route: 048
     Dates: start: 20070101
  2. BUPROPION HCL [Suspect]
     Indication: POST-TRAUMATIC STRESS DISORDER
     Dosage: 1X DAY PO STILL ON 150 MG DAY
     Route: 048
     Dates: start: 20070101
  3. CYMBALTA [Suspect]
     Indication: DEPRESSION
     Dosage: 1X DAY PO 120 MG TIL 08/2010 NOW 20
     Route: 048
     Dates: start: 20070101, end: 20100801
  4. CYMBALTA [Suspect]
     Indication: POST-TRAUMATIC STRESS DISORDER
     Dosage: 1X DAY PO 120 MG TIL 08/2010 NOW 20
     Route: 048
     Dates: start: 20070101, end: 20100801

REACTIONS (10)
  - AGITATION [None]
  - APPETITE DISORDER [None]
  - CONDITION AGGRAVATED [None]
  - DEPRESSION [None]
  - DIZZINESS [None]
  - MEMORY IMPAIRMENT [None]
  - PARAESTHESIA [None]
  - SLEEP DISORDER [None]
  - SPEECH DISORDER [None]
  - SUICIDAL IDEATION [None]
